FAERS Safety Report 13292505 (Version 1)
Quarter: 2017Q1

REPORT INFORMATION
  Report Type: Spontaneous
  Country: US (occurrence: US)
  Receive Date: 20170303
  Receipt Date: 20170303
  Transmission Date: 20170428
  Serious: Yes (Hospitalization, Other)
  Sender: FDA-Public Use
  Company Number: US-MALLINCKRODT-T201700740

PATIENT
  Age: 66 Year
  Sex: Female
  Weight: 91 kg

DRUGS (19)
  1. GABLOFEN [Suspect]
     Active Substance: BACLOFEN
     Indication: MULTIPLE SCLEROSIS
  2. LASIX [Concomitant]
     Active Substance: FUROSEMIDE
  3. MACRODANTIN [Concomitant]
     Active Substance: NITROFURANTOIN
  4. LIORESAL [Suspect]
     Active Substance: BACLOFEN
     Indication: MUSCLE SPASTICITY
     Dosage: 790 ?G, QD
     Route: 037
  5. DIAZEPAM. [Concomitant]
     Active Substance: DIAZEPAM
  6. OMEPRAZOLE. [Concomitant]
     Active Substance: OMEPRAZOLE
  7. OXYBUTYNIN [Concomitant]
     Active Substance: OXYBUTYNIN
  8. GABLOFEN [Suspect]
     Active Substance: BACLOFEN
     Indication: MUSCLE SPASTICITY
     Dosage: 790 ?G, QD
     Route: 037
  9. CLARIN [Concomitant]
  10. PROZAC [Concomitant]
     Active Substance: FLUOXETINE HYDROCHLORIDE
  11. CALCIUM + VIT D [Concomitant]
     Active Substance: CALCIUM\VITAMIN D
  12. HYDROCODONE BITARTRATE AND ACETAMINOPHEN [Concomitant]
     Active Substance: ACETAMINOPHEN\HYDROCODONE BITARTRATE
  13. VITAMIN D [Concomitant]
     Active Substance: CHOLECALCIFEROL
  14. ZINC. [Concomitant]
     Active Substance: ZINC
  15. LIORESAL [Suspect]
     Active Substance: BACLOFEN
     Indication: MULTIPLE SCLEROSIS
  16. COUMADIN [Concomitant]
     Active Substance: WARFARIN SODIUM
  17. FIBERCON [Concomitant]
     Active Substance: CALCIUM POLYCARBOPHIL
  18. JANTOVEN [Concomitant]
     Active Substance: WARFARIN SODIUM
  19. POTASSIUM CHLORIDE. [Concomitant]
     Active Substance: POTASSIUM CHLORIDE

REACTIONS (1)
  - Decubitus ulcer [Unknown]

NARRATIVE: CASE EVENT DATE: 201601
